FAERS Safety Report 7393877-1 (Version None)
Quarter: 2011Q2

REPORT INFORMATION
  Report Type: 
  Country: None (occurrence: None)
  Receive Date: 20110405
  Receipt Date: 20110322
  Transmission Date: 20111010
  Serious: Yes (Hospitalization)
  Sender: FDA-Public Use
  Company Number: US-JNJFOC-20090605296

PATIENT
  Age: 9 Year
  Sex: Female
  Weight: 29.5 kg

DRUGS (14)
  1. INFLIXIMAB [Suspect]
     Indication: CROHN'S DISEASE
     Route: 042
  2. PREDNISONE [Concomitant]
  3. METRONIDAZOLE [Concomitant]
  4. PREVACID [Concomitant]
  5. IRON [Concomitant]
  6. MULTIPLE VITAMIN [Concomitant]
  7. 5-AMINOSALICYLIC ACID [Concomitant]
     Route: 048
  8. ZYRTEC [Concomitant]
  9. INFLIXIMAB [Suspect]
     Route: 042
  10. HUMIRA [Concomitant]
  11. ENTERAL FEEDING [Concomitant]
  12. INFLIXIMAB [Suspect]
     Route: 042
  13. INFLIXIMAB [Suspect]
     Route: 042
  14. FISH OIL [Concomitant]

REACTIONS (2)
  - CROHN'S DISEASE [None]
  - CRYPTOSPORIDIOSIS INFECTION [None]
